FAERS Safety Report 5473827-5 (Version None)
Quarter: 2007Q4

REPORT INFORMATION
  Report Type: 
  Country: None (occurrence: None)
  Receive Date: 20071001
  Receipt Date: 20040203
  Transmission Date: 20080405
  Serious: Yes (Other)
  Sender: FDA-Public Use
  Company Number: US-PFIZER INC-2007061491

PATIENT
  Sex: Female

DRUGS (1)
  1. CELEBREX [Suspect]
     Dosage: DAILY DOSE:200MG

REACTIONS (3)
  - DYSPNOEA [None]
  - PALPITATIONS [None]
  - SWOLLEN TONGUE [None]
